FAERS Safety Report 7937962-1 (Version None)
Quarter: 2011Q4

REPORT INFORMATION
  Report Type: 
  Country: None (occurrence: None)
  Receive Date: 20111123
  Receipt Date: 20111111
  Transmission Date: 20120403
  Serious: Yes (Life-Threatening)
  Sender: FDA-Public Use
  Company Number: JP-CTI_01414_2011

PATIENT
  Age: 73 Year
  Sex: Male

DRUGS (10)
  1. CARVEDILOL [Concomitant]
     Indication: HYPERTENSION
     Dosage: DAILY DOSE 10 MG FREQUENCY UNKNOWN
     Route: 048
     Dates: start: 20080507
  2. ASPIRIN [Concomitant]
     Indication: PROPHYLAXIS
     Dosage: DAILY DOSE 100 MG FREQUENCY UNKNOWN
     Route: 048
     Dates: start: 20080512
  3. ATORVASTATIN CALCIUM [Concomitant]
     Indication: HYPERCHOLESTEROLAEMIA
     Dosage: DAILY DOSE 10 MG FREQUENCY UNKNOWN
     Route: 048
     Dates: start: 20101023, end: 20111018
  4. DOXAZOSIN MESYLATE [Concomitant]
     Indication: HYPERTENSION
     Dosage: DAILY DOSE 1 MG FREQUENCY UNKNOWN
     Route: 048
     Dates: start: 20110824
  5. CILOSTAZOL [Concomitant]
     Indication: PROPHYLAXIS
     Dosage: DAILY DOSE 100 MG
     Route: 048
     Dates: start: 20101101
  6. AMLODIPINE BESYLATE [Concomitant]
     Indication: HYPERTENSION
     Dosage: DAILY DOSE 5 MG FREQUENCY UNKNOWN
     Route: 048
     Dates: start: 20061212
  7. GLIMEPIRIDE [Concomitant]
     Indication: DIABETES MELLITUS
     Dosage: DAILY DOSE 3 MG FREQUENCY UNKNOWN
     Route: 048
     Dates: start: 20101023
  8. CANDESARTAN CILEXETIL [Concomitant]
     Indication: HYPERTENSION
     Dosage: DAILY DOSE 8 MG FREQUENCY UNKNOWN
     Route: 048
     Dates: start: 20071010
  9. ACETAMINOPHEN [Concomitant]
     Indication: PRODUCT USED FOR UNKNOWN INDICATION
     Route: 048
     Dates: start: 20111015, end: 20111018
  10. MEIACT MS - CEFDITOREN PIVOXIL [Suspect]
     Indication: OROPHARYNGEAL PAIN
     Dosage: DAILY DOSE 300 MG
     Route: 048
     Dates: start: 20111015, end: 20111018

REACTIONS (13)
  - RASH [None]
  - PRURITUS [None]
  - STOMATITIS [None]
  - PRURIGO [None]
  - DERMATITIS EXFOLIATIVE [None]
  - DYSPHAGIA [None]
  - FACE OEDEMA [None]
  - STEVENS-JOHNSON SYNDROME [None]
  - PHARYNGEAL OEDEMA [None]
  - PHARYNGEAL STENOSIS [None]
  - OEDEMA PERIPHERAL [None]
  - TONSILLAR HYPERTROPHY [None]
  - DYSPNOEA [None]
